FAERS Safety Report 7738603-9 (Version None)
Quarter: 2011Q3

REPORT INFORMATION
  Report Type: 
  Country: None (occurrence: None)
  Receive Date: 20110908
  Receipt Date: 20110830
  Transmission Date: 20111222
  Serious: Yes (Other)
  Sender: FDA-Public Use
  Company Number: US-ASTRAZENECA-2011SE51664

PATIENT
  Age: 55 Year
  Sex: Female

DRUGS (2)
  1. LYRICA [Concomitant]
  2. CRESTOR [Suspect]
     Route: 048

REACTIONS (2)
  - FIBROMUSCULAR DYSPLASIA [None]
  - INTRACRANIAL ANEURYSM [None]
